FAERS Safety Report 7844557 (Version 3)
Quarter: 2015Q2

REPORT INFORMATION
  Report Type: Report from Study
  Country: JP (occurrence: JP)
  Receive Date: 20110307
  Receipt Date: 20150506
  Transmission Date: 20150821
  Serious: Yes (Death, Hospitalization)
  Sender: FDA-Public Use
  Company Number: JP-JNJFOC-20110206337

PATIENT
  Age: 66 Year
  Sex: Male
  Weight: 45 kg

DRUGS (34)
  1. DOXIL [Suspect]
     Active Substance: DOXORUBICIN HYDROCHLORIDE
     Indication: KAPOSI^S SARCOMA AIDS RELATED
     Dosage: CYCLE 6
     Route: 042
     Dates: start: 20080911, end: 20080911
  2. EPIVIR [Concomitant]
     Active Substance: LAMIVUDINE
     Indication: HIV INFECTION
     Route: 048
     Dates: start: 20081029, end: 20081119
  3. SULFAMETHOXAZOLE-TRIMETHOPRIM (SMZ) [Concomitant]
     Active Substance: SULFAMETHOXAZOLE\TRIMETHOPRIM
     Indication: MYCOBACTERIUM AVIUM COMPLEX INFECTION
     Route: 048
     Dates: start: 20080415, end: 20080418
  4. ATOVAQUONE. [Concomitant]
     Active Substance: ATOVAQUONE
     Indication: HIV INFECTION
     Route: 048
     Dates: start: 20080604, end: 20081119
  5. DOXIL [Suspect]
     Active Substance: DOXORUBICIN HYDROCHLORIDE
     Indication: KAPOSI^S SARCOMA AIDS RELATED
     Dosage: CYCLE 3
     Route: 042
     Dates: start: 20080602, end: 20080602
  6. DOXIL [Suspect]
     Active Substance: DOXORUBICIN HYDROCHLORIDE
     Indication: KAPOSI^S SARCOMA AIDS RELATED
     Dosage: CYCLE 2
     Route: 042
     Dates: start: 20080512, end: 20080512
  7. DOXIL [Suspect]
     Active Substance: DOXORUBICIN HYDROCHLORIDE
     Indication: KAPOSI^S SARCOMA AIDS RELATED
     Dosage: CYCLE 9
     Route: 042
     Dates: start: 20081112, end: 20081112
  8. LOPINAVIR RITONAVIR [Concomitant]
     Active Substance: LOPINAVIR\RITONAVIR
     Indication: HIV INFECTION
     Route: 048
     Dates: start: 20080610, end: 20080927
  9. ALBUMIN [Concomitant]
     Active Substance: ALBUMIN (HUMAN)
     Indication: KAPOSI^S SARCOMA AIDS RELATED
     Route: 042
     Dates: start: 20080416, end: 20081104
  10. MEROPENEM HYDRATE [Concomitant]
     Active Substance: MEROPENEM
     Route: 041
     Dates: start: 20080604, end: 20080614
  11. AMBISOME [Concomitant]
     Active Substance: AMPHOTERICIN B
     Route: 041
     Dates: start: 20081009, end: 20081119
  12. DOXIL [Suspect]
     Active Substance: DOXORUBICIN HYDROCHLORIDE
     Indication: KAPOSI^S SARCOMA AIDS RELATED
     Dosage: CYCLE 4
     Route: 042
     Dates: start: 20080623, end: 20080623
  13. SULFADOXINE PYRIMETHAMINE [Concomitant]
     Indication: MYCOBACTERIUM AVIUM COMPLEX INFECTION
     Route: 048
     Dates: start: 20080420, end: 20080603
  14. CLINDAMYCIN [Concomitant]
     Active Substance: CLINDAMYCIN\CLINDAMYCIN PHOSPHATE
     Indication: MYCOBACTERIUM AVIUM COMPLEX INFECTION
     Route: 048
     Dates: start: 20080430, end: 20080603
  15. CONCENTRATED RED CELLS [Concomitant]
     Active Substance: HUMAN RED BLOOD CELL
     Indication: PROPHYLAXIS
     Route: 041
     Dates: start: 20080417, end: 20081114
  16. FUNGUARD [Concomitant]
     Active Substance: MICAFUNGIN SODIUM
     Route: 041
     Dates: start: 20080929, end: 20081119
  17. DOXIL [Suspect]
     Active Substance: DOXORUBICIN HYDROCHLORIDE
     Indication: KAPOSI^S SARCOMA AIDS RELATED
     Dosage: CYCLE 5
     Route: 042
     Dates: start: 20080821, end: 20080821
  18. DOXIL [Suspect]
     Active Substance: DOXORUBICIN HYDROCHLORIDE
     Indication: KAPOSI^S SARCOMA AIDS RELATED
     Dosage: CYCLE 1
     Route: 042
     Dates: start: 20080421, end: 20080421
  19. ETHAMBUTOL HYDROCHLORIDE. [Concomitant]
     Active Substance: ETHAMBUTOL HYDROCHLORIDE
     Indication: MYCOBACTERIUM AVIUM COMPLEX INFECTION
     Route: 048
     Dates: start: 20080503, end: 20080829
  20. LEUCOVORIN [Concomitant]
     Active Substance: LEUCOVORIN
     Indication: MYCOBACTERIUM AVIUM COMPLEX INFECTION
     Route: 048
     Dates: start: 20080419, end: 20080429
  21. SULFAMETHOXAZOLE [Concomitant]
     Active Substance: SULFAMETHOXAZOLE
     Indication: MYCOBACTERIUM AVIUM COMPLEX INFECTION
     Route: 048
     Dates: start: 20080419, end: 20080429
  22. DOXIL [Suspect]
     Active Substance: DOXORUBICIN HYDROCHLORIDE
     Indication: KAPOSI^S SARCOMA AIDS RELATED
     Dosage: CYCLE 7
     Route: 042
     Dates: start: 20081007, end: 20081007
  23. EPIVIR [Concomitant]
     Active Substance: LAMIVUDINE
     Indication: HIV INFECTION
     Route: 048
     Dates: start: 20080610, end: 20080829
  24. EPZICOM [Concomitant]
     Active Substance: ABACAVIR SULFATE\LAMIVUDINE
     Indication: HIV INFECTION
     Route: 048
     Dates: start: 20080830, end: 20080927
  25. RIFABUTIN. [Concomitant]
     Active Substance: RIFABUTIN
     Indication: MYCOBACTERIUM AVIUM COMPLEX INFECTION
     Route: 048
     Dates: start: 20080503, end: 20080609
  26. ZIAGEN [Concomitant]
     Active Substance: ABACAVIR SULFATE
     Indication: HIV INFECTION
     Route: 048
     Dates: start: 20080610, end: 20080829
  27. CLARITH [Concomitant]
     Active Substance: CLARITHROMYCIN
     Indication: MYCOBACTERIUM AVIUM COMPLEX INFECTION
     Route: 048
     Dates: start: 20080503, end: 20080829
  28. LOPINAVIR RITONAVIR [Concomitant]
     Active Substance: LOPINAVIR\RITONAVIR
     Indication: HIV INFECTION
     Route: 048
     Dates: start: 20081029, end: 20081119
  29. GRAN [Concomitant]
     Active Substance: FILGRASTIM
     Indication: WHITE BLOOD CELL COUNT DECREASED
     Route: 058
     Dates: start: 20080519, end: 20081026
  30. GRAN [Concomitant]
     Active Substance: FILGRASTIM
     Indication: PROPHYLAXIS
     Route: 058
     Dates: start: 20080519, end: 20081026
  31. RIFABUTIN. [Concomitant]
     Active Substance: RIFABUTIN
     Indication: MYCOBACTERIUM AVIUM COMPLEX INFECTION
     Route: 048
     Dates: start: 20080610, end: 20080829
  32. DOXIL [Suspect]
     Active Substance: DOXORUBICIN HYDROCHLORIDE
     Indication: KAPOSI^S SARCOMA AIDS RELATED
     Dosage: CYCLE 8
     Route: 042
     Dates: start: 20081021, end: 20081021
  33. RALTEGRAVIR [Concomitant]
     Active Substance: RALTEGRAVIR
     Indication: HIV INFECTION
     Route: 048
     Dates: start: 20081029, end: 20081119
  34. REMINARON [Concomitant]
     Active Substance: GABEXATE MESYLATE
     Route: 041
     Dates: start: 20080924, end: 20081110

REACTIONS (7)
  - Disseminated intravascular coagulation [Fatal]
  - Immune thrombocytopenic purpura [Not Recovered/Not Resolved]
  - Kaposi^s sarcoma AIDS related [Fatal]
  - Multi-organ failure [Fatal]
  - Seizure [Unknown]
  - Pleural effusion [Not Recovered/Not Resolved]
  - Pancreatitis [Not Recovered/Not Resolved]

NARRATIVE: CASE EVENT DATE: 20080503
